FAERS Safety Report 8777024 (Version 1)
Quarter: 2012Q4

REPORT INFORMATION
  Report Type: 
  Country: US (occurrence: US)
  Receive Date: 20120911
  Receipt Date: 20120911
  Transmission Date: 20130627
  Serious: Yes (Other)
  Sender: FDA-Public Use
  Company Number: US-WATSON-2012-15480

PATIENT
  Age: 2 Month
  Sex: Male

DRUGS (5)
  1. LITHIUM CARBONATE [Suspect]
     Indication: EXPOSURE DURING BREAST FEEDING
     Dosage: UNK
     Route: 063
  2. LITHIUM CARBONATE [Suspect]
     Indication: FOETAL EXPOSURE DURING PREGNANCY
     Route: 063
  3. LITHIUM CARBONATE [Suspect]
     Dosage: UNK
     Route: 064
  4. BUPROPION HYDROCLORIDE [Suspect]
     Indication: MATERNAL EXPOSURE DURING PREGNANCY
     Route: 064
  5. BUPROPION HYDROCHLORIDE [Suspect]
     Route: 063

REACTIONS (5)
  - Hypotonia neonatal [Recovered/Resolved]
  - Weight decrease neonatal [Recovering/Resolving]
  - Foetal exposure during pregnancy [Recovered/Resolved]
  - Exposure during breast feeding [Recovered/Resolved]
  - Developmental delay [Recovered/Resolved]
